FAERS Safety Report 5931455-9 (Version None)
Quarter: 2008Q4

REPORT INFORMATION
  Report Type: 
  Country: None (occurrence: None)
  Receive Date: 20081027
  Receipt Date: 20081021
  Transmission Date: 20090506
  Serious: Yes (Hospitalization)
  Sender: FDA-Public Use
  Company Number: CH-BRISTOL-MYERS SQUIBB COMPANY-14379275

PATIENT
  Age: 63 Year
  Sex: Female

DRUGS (4)
  1. CETUXIMAB [Suspect]
     Indication: OESOPHAGEAL CARCINOMA
     Dosage: THERAPY STARTED ON 15-JUL-2008
     Route: 042
     Dates: start: 20080921, end: 20080921
  2. CISPLATIN [Suspect]
     Indication: OESOPHAGEAL CARCINOMA
     Dosage: THERAPY STARTED ON 15-JUL-2008
     Route: 042
     Dates: start: 20080921, end: 20080921
  3. DOCETAXEL [Suspect]
     Indication: OESOPHAGEAL CARCINOMA
     Dosage: THERAPY STARTED ON 15-JUL-2008
     Route: 042
     Dates: start: 20080921, end: 20080921
  4. RADIATION THERAPY [Suspect]
     Indication: OESOPHAGEAL CARCINOMA
     Dosage: 1 DOSAGE FORM = 1.8GY; THERAPY STARTED ON 25-AUG-2008.
     Dates: start: 20080921, end: 20080921

REACTIONS (2)
  - DYSPHAGIA [None]
  - HYPOMAGNESAEMIA [None]
